FAERS Safety Report 7191242-3 (Version None)
Quarter: 2010Q4

REPORT INFORMATION
  Report Type: 
  Country: None (occurrence: None)
  Receive Date: 20101223
  Receipt Date: 20101208
  Transmission Date: 20110411
  Serious: Yes (Other)
  Sender: FDA-Public Use
  Company Number: US-ROCHE-727160

PATIENT
  Sex: Male
  Weight: 70.3 kg

DRUGS (4)
  1. ACCUTANE [Suspect]
     Indication: ACNE
     Route: 065
     Dates: start: 19990101
  2. ACCUTANE [Suspect]
     Route: 065
     Dates: start: 20020328, end: 20020801
  3. ACCUTANE [Suspect]
     Route: 065
     Dates: end: 20021119
  4. PREDNISONE [Concomitant]

REACTIONS (12)
  - ACNE [None]
  - ANAEMIA [None]
  - CHAPPED LIPS [None]
  - COLITIS ULCERATIVE [None]
  - CROHN'S DISEASE [None]
  - DEPRESSION [None]
  - GASTROINTESTINAL INJURY [None]
  - HAEMORRHOIDS [None]
  - INFLAMMATORY BOWEL DISEASE [None]
  - MIGRAINE [None]
  - PRURITUS [None]
  - WEIGHT DECREASED [None]
